FAERS Safety Report 7464361-1 (Version None)
Quarter: 2011Q2

REPORT INFORMATION
  Report Type: 
  Country: None (occurrence: None)
  Receive Date: 20110509
  Receipt Date: 20110502
  Transmission Date: 20111010
  Serious: Yes (Hospitalization, Other)
  Sender: FDA-Public Use
  Company Number: US-TEVA-279433USA

PATIENT
  Age: 69 Year
  Sex: Male
  Weight: 96 kg

DRUGS (3)
  1. PARACETAMOL [Concomitant]
  2. CELECOXIB [Suspect]
     Indication: ARTHRITIS
     Dosage: 200 MILLIGRAM;
     Route: 048
     Dates: start: 19980901, end: 20010515
  3. DANAZOL [Suspect]
     Dates: start: 19600101

REACTIONS (3)
  - MYOCARDIAL INFARCTION [None]
  - RENAL IMPAIRMENT [None]
  - CORONARY ARTERY OCCLUSION [None]
